FAERS Safety Report 18919316 (Version 1)
Quarter: 2021Q1

REPORT INFORMATION
  Report Type: Report from Study
  Country: DE (occurrence: DE)
  Receive Date: 20210220
  Receipt Date: 20210220
  Transmission Date: 20210420
  Serious: Yes (Death, Hospitalization, Other)
  Sender: FDA-Public Use
  Company Number: DE-SHIRE-ALL1-2012-02400

PATIENT
  Age: 23 Year
  Sex: Male
  Weight: 40.4 kg

DRUGS (2)
  1. EMLA [Concomitant]
     Active Substance: LIDOCAINE\PRILOCAINE
     Indication: PAIN
     Dosage: 25.0 MG, AS REQ^D
     Route: 061
     Dates: start: 20040109, end: 2005
  2. IDURSULFASE [Suspect]
     Active Substance: IDURSULFASE
     Indication: MUCOPOLYSACCHARIDOSIS II
     Dosage: 0.5 MG/KG, 1X/WEEK (20.2 MG)
     Route: 041
     Dates: start: 20050112

REACTIONS (5)
  - Back pain [Recovered/Resolved]
  - Nerve compression [Fatal]
  - Myelomalacia [Recovered/Resolved]
  - Gait disturbance [Recovered/Resolved]
  - Tremor [Recovered/Resolved]

NARRATIVE: CASE EVENT DATE: 20120118
